FAERS Safety Report 14202030 (Version 1)
Quarter: 2017Q4

REPORT INFORMATION
  Report Type: Spontaneous
  Country: US (occurrence: US)
  Receive Date: 20171117
  Receipt Date: 20171117
  Transmission Date: 20180321
  Serious: Yes (Hospitalization, Other)
  Sender: FDA-Public Use
  Company Number: US-PFIZER INC-2017490545

PATIENT
  Age: 50 Year
  Sex: Female

DRUGS (1)
  1. TRANEXAMIC ACID. [Suspect]
     Active Substance: TRANEXAMIC ACID
     Indication: FALL
     Dosage: UNK

REACTIONS (4)
  - Status epilepticus [Unknown]
  - Product use in unapproved indication [Unknown]
  - Cardiogenic shock [Unknown]
  - Cardiomyopathy [Unknown]
